FAERS Safety Report 7459488-4 (Version None)
Quarter: 2011Q2

REPORT INFORMATION
  Report Type: 
  Country: None (occurrence: None)
  Receive Date: 20110505
  Receipt Date: 20110426
  Transmission Date: 20111010
  Serious: Yes (Hospitalization)
  Sender: FDA-Public Use
  Company Number: US-US-EMD SERONO, INC.-7056225

PATIENT
  Sex: Female
  Weight: 79 kg

DRUGS (1)
  1. REBIF [Suspect]
     Indication: MULTIPLE SCLEROSIS
     Route: 058
     Dates: start: 20070315, end: 20110330

REACTIONS (7)
  - FATIGUE [None]
  - HEADACHE [None]
  - PNEUMONIA [None]
  - LUNG DISORDER [None]
  - NASOPHARYNGITIS [None]
  - INJECTION SITE DISCOLOURATION [None]
  - INJECTION SITE HAEMATOMA [None]
